FAERS Safety Report 7678814-4 (Version None)
Quarter: 2011Q3

REPORT INFORMATION
  Report Type: 
  Country: None (occurrence: None)
  Receive Date: 20110811
  Receipt Date: 20110809
  Transmission Date: 20111222
  Serious: Yes (Death, Life-Threatening, Hospitalization)
  Sender: FDA-Public Use
  Company Number: US-MILLENNIUM PHARMACEUTICALS, INC.-2011-03500

PATIENT
  Sex: Male
  Weight: 102.6 kg

DRUGS (26)
  1. VINCRISTINE [Suspect]
     Indication: MANTLE CELL LYMPHOMA
  2. DEXAMETHASONE [Suspect]
     Indication: MANTLE CELL LYMPHOMA
  3. CIPROFLOXACIN [Concomitant]
     Indication: INFECTION PROPHYLAXIS
     Dosage: 500 MG, BID
     Route: 048
  4. VALTREX [Concomitant]
     Indication: INFECTION PROPHYLAXIS
     Dosage: 500 MG, QD
     Route: 048
  5. CYCLOPHOSPHAMIDE [Suspect]
     Indication: MANTLE CELL LYMPHOMA
  6. HEPARIN [Concomitant]
     Indication: PROPHYLAXIS
     Dosage: 2 ML, QD
  7. SENOKOT [Concomitant]
     Indication: CONSTIPATION
     Dosage: UNK
     Route: 048
  8. MESNA [Concomitant]
     Indication: MANTLE CELL LYMPHOMA
  9. VELCADE [Suspect]
     Indication: MANTLE CELL LYMPHOMA
     Dosage: 2.6 MG, CYCLIC
     Route: 040
     Dates: end: 20110731
  10. CYTARABINE [Suspect]
     Indication: MANTLE CELL LYMPHOMA
     Dosage: 6 G, CYCLIC
     Route: 042
     Dates: end: 20110729
  11. PREVIDENT [Concomitant]
     Indication: DENTAL CARE
     Dosage: 1.1 %, QD
  12. RITUXIMAB [Suspect]
     Indication: MANTLE CELL LYMPHOMA
     Dosage: 750 MG, CYCLIC
     Route: 042
     Dates: end: 20110726
  13. METHOTREXATE [Suspect]
     Dosage: 1600 MG, CYCLIC
     Route: 042
     Dates: end: 20110728
  14. ADRIAMYCIN PFS [Suspect]
     Indication: MANTLE CELL LYMPHOMA
  15. TRIAMCINOLONE ACETONIDE [Concomitant]
     Indication: RASH
     Dosage: UNK
     Route: 061
  16. METHOTREXATE [Suspect]
     Indication: MANTLE CELL LYMPHOMA
     Dosage: 400 MG, CYCLIC
     Route: 042
     Dates: end: 20110727
  17. FLUCONAZOLE [Concomitant]
     Indication: INFECTION PROPHYLAXIS
     Dosage: 100 MG, QD
     Route: 048
  18. OMEPRAZOLE [Concomitant]
     Indication: GASTROOESOPHAGEAL REFLUX DISEASE
     Dosage: 20 MG, BID
     Route: 048
  19. COMPAZINE [Concomitant]
     Indication: PROPHYLAXIS OF NAUSEA AND VOMITING
     Dosage: 10 MG, PRN
     Route: 048
  20. VITAMIN D [Concomitant]
     Indication: SUPPLEMENTATION THERAPY
     Dosage: 1000 UNK, QD
     Route: 048
  21. FERROUS SULFATE TAB [Concomitant]
     Indication: SUPPLEMENTATION THERAPY
     Dosage: 325 MG, QD
     Route: 048
  22. FILGRASTIM [Concomitant]
     Indication: WHITE BLOOD CELL COUNT
     Dosage: 480 UG, QD
     Route: 058
  23. METHYLPREDNISOLONE [Concomitant]
     Indication: PRODUCT USED FOR UNKNOWN INDICATION
     Dosage: UNK
     Route: 048
  24. PERIOGARD [Concomitant]
     Indication: DENTAL CARE
     Dosage: 15 ML, BID
  25. ULTRAM [Concomitant]
     Indication: PAIN
     Dosage: 50 MG, PRN
     Route: 048
  26. VITAMIN C                          /00008001/ [Concomitant]
     Indication: SUPPLEMENTATION THERAPY
     Dosage: UNK
     Route: 048

REACTIONS (6)
  - THROMBOCYTOPENIA [None]
  - CARDIO-RESPIRATORY ARREST [None]
  - TROPONIN I [None]
  - INFECTION [None]
  - ANAEMIA [None]
  - RESPIRATORY FAILURE [None]
